FAERS Safety Report 25231430 (Version 3)
Quarter: 2025Q2

REPORT INFORMATION
  Report Type: Report from Study
  Country: CA (occurrence: CA)
  Receive Date: 20250423
  Receipt Date: 20250523
  Transmission Date: 20250717
  Serious: Yes (Other)
  Sender: TAKEDA
  Company Number: CA-TAKEDA-2025TUS016142

PATIENT
  Sex: Male
  Weight: 65.76 kg

DRUGS (4)
  1. VEDOLIZUMAB [Suspect]
     Active Substance: VEDOLIZUMAB
     Indication: Crohn^s disease
  2. VEDOLIZUMAB [Suspect]
     Active Substance: VEDOLIZUMAB
     Dosage: 300 MILLIGRAM, Q4WEEKS
     Dates: start: 20250505
  3. FERROUS FUMARATE [Suspect]
     Active Substance: FERROUS FUMARATE
     Indication: Product used for unknown indication
  4. PENTASA [Concomitant]
     Active Substance: MESALAMINE
     Dosage: 3 GRAM, QD

REACTIONS (7)
  - Angioedema [Not Recovered/Not Resolved]
  - Swelling face [Not Recovered/Not Resolved]
  - Pharyngeal swelling [Not Recovered/Not Resolved]
  - Peripheral swelling [Recovering/Resolving]
  - Diarrhoea [Unknown]
  - Blood albumin decreased [Unknown]
  - Constipation [Unknown]
